FAERS Safety Report 5598541-7 (Version None)
Quarter: 2008Q1

REPORT INFORMATION
  Report Type: 
  Country: None (occurrence: None)
  Receive Date: 20080122
  Receipt Date: 20080111
  Transmission Date: 20080703
  Serious: Yes (Other)
  Sender: FDA-Public Use
  Company Number: JP-WYE-H02097608

PATIENT
  Age: 32 Year
  Sex: Female

DRUGS (1)
  1. TRIQUILAR-21 [Suspect]
     Indication: ORAL CONTRACEPTION
     Route: 048
     Dates: start: 20070401, end: 20071201

REACTIONS (2)
  - DEEP VEIN THROMBOSIS [None]
  - SKIN BACTERIAL INFECTION [None]
